FAERS Safety Report 13231995 (Version 1)
Quarter: 2017Q1

REPORT INFORMATION
  Report Type: Report from Study
  Country: US (occurrence: US)
  Receive Date: 20170214
  Receipt Date: 20170214
  Transmission Date: 20170428
  Serious: Yes (Other)
  Sender: FDA-Public Use
  Company Number: US-INGENUS PHARMACEUTICALS NJ, LLC-ING201702-000067

PATIENT

DRUGS (1)
  1. CARISOPRODOL AND ASPIRIN [Suspect]
     Active Substance: ASPIRIN\CARISOPRODOL
     Indication: IMMUNE TOLERANCE INDUCTION

REACTIONS (3)
  - Chest pain [Unknown]
  - Hyperhidrosis [Unknown]
  - Bradycardia [Unknown]
